FAERS Safety Report 4770802-0 (Version None)
Quarter: 2005Q3

REPORT INFORMATION
  Report Type: 
  Country: None (occurrence: None)
  Receive Date: 20050914
  Receipt Date: 20050914
  Transmission Date: 20060218
  Serious: No
  Sender: FDA-Public Use
  Company Number: None

PATIENT
  Age: 69 Year
  Sex: Female

DRUGS (3)
  1. VANCOMYCIN [Suspect]
     Indication: INFECTION
     Dosage: 2G   Q24H   IV
     Route: 042
     Dates: start: 20050715, end: 20050722
  2. VANCOMYCIN [Suspect]
     Indication: MEDICAL DEVICE COMPLICATION
     Dosage: 2G   Q24H   IV
     Route: 042
     Dates: start: 20050715, end: 20050722
  3. PIPERACILLIN/TAZOBACTAM [Concomitant]

REACTIONS (1)
  - RENAL FAILURE ACUTE [None]
